FAERS Safety Report 10144523 (Version 1)
Quarter: 2014Q2

REPORT INFORMATION
  Report Type: Spontaneous
  Country: US (occurrence: US)
  Receive Date: 20140430
  Receipt Date: 20140430
  Transmission Date: 20141212
  Serious: No
  Sender: FDA-Public Use
  Company Number: US-SANOFI-AVENTIS-2013SA039710

PATIENT
  Age: 66 Year
  Sex: Female

DRUGS (5)
  1. LOVENOX [Suspect]
     Indication: KNEE ARTHROPLASTY
     Dates: start: 20130221, end: 20130307
  2. COUMADIN [Concomitant]
  3. ASPIRIN [Concomitant]
  4. PERCOCET [Concomitant]
  5. LORTAB [Concomitant]

REACTIONS (5)
  - Abdominal discomfort [Not Recovered/Not Resolved]
  - Nausea [Not Recovered/Not Resolved]
  - Vomiting [Not Recovered/Not Resolved]
  - Injection site nodule [Not Recovered/Not Resolved]
  - Back pain [Not Recovered/Not Resolved]
